FAERS Safety Report 7296358-9 (Version None)
Quarter: 2011Q1

REPORT INFORMATION
  Report Type: 
  Country: None (occurrence: None)
  Receive Date: 20110216
  Receipt Date: 20110209
  Transmission Date: 20110831
  Serious: Yes (Hospitalization)
  Sender: FDA-Public Use
  Company Number: US-TEVA-266669USA

PATIENT
  Age: 77 Year
  Sex: Male
  Weight: 63.56 kg

DRUGS (3)
  1. VENLAFAXINE HYDROCHLORIDE [Suspect]
     Indication: BIPOLAR I DISORDER
     Route: 048
     Dates: start: 20101101, end: 20101201
  2. UNSPECIFIED HIGH BLOOD PRESSURE MEDICATION [Concomitant]
     Indication: HYPERTENSION
  3. VENLAFAXINE [Suspect]
     Indication: BIPOLAR I DISORDER
     Route: 048
     Dates: end: 20101101

REACTIONS (4)
  - HYPERTENSION [None]
  - DRUG INEFFECTIVE [None]
  - CHRONIC OBSTRUCTIVE PULMONARY DISEASE [None]
  - EMPHYSEMA [None]
